FAERS Safety Report 16240704 (Version 3)
Quarter: 2019Q4

REPORT INFORMATION
  Report Type: Spontaneous
  Country: US (occurrence: US)
  Receive Date: 20190425
  Receipt Date: 20191025
  Transmission Date: 20200122
  Serious: No
  Sender: FDA-Public Use
  Company Number: US-ACTELION-A-US2019-188814

PATIENT
  Sex: Male
  Weight: 92.06 kg

DRUGS (5)
  1. NIFEDIPINE. [Concomitant]
     Active Substance: NIFEDIPINE
  2. OPSUMIT [Suspect]
     Active Substance: MACITENTAN
     Indication: PULMONARY HYPERTENSION
     Dosage: 10 MG, QD
     Route: 048
     Dates: start: 20171220
  3. FLONASE [Suspect]
     Active Substance: FLUTICASONE PROPIONATE
     Indication: NASAL CONGESTION
     Dosage: UNK
     Route: 045
  4. SILDENAFIL CITRATE. [Concomitant]
     Active Substance: SILDENAFIL CITRATE
  5. UPTRAVI [Suspect]
     Active Substance: SELEXIPAG
     Indication: PULMONARY HYPERTENSION
     Dosage: 200 MCG, BID
     Route: 048

REACTIONS (13)
  - Sinus disorder [Unknown]
  - Nasal congestion [Unknown]
  - Immunoglobulins decreased [Unknown]
  - Pneumonia [Unknown]
  - Diarrhoea [Unknown]
  - Orbital oedema [Unknown]
  - Sinus congestion [Unknown]
  - Rhinorrhoea [Unknown]
  - Mucosal disorder [Unknown]
  - Nausea [Unknown]
  - Pulmonary hypertension [Unknown]
  - Productive cough [Unknown]
  - Somnolence [Unknown]
